FAERS Safety Report 17729725 (Version 2)
Quarter: 2020Q2

REPORT INFORMATION
  Report Type: Report from Study
  Country: CO (occurrence: CO)
  Receive Date: 20200430
  Receipt Date: 20200616
  Transmission Date: 20200714
  Serious: Yes (Other)
  Sender: FDA-Public Use
  Company Number: NVSC2020CO096046

PATIENT
  Age: 51 Year
  Sex: Male

DRUGS (4)
  1. REVOLADE [Suspect]
     Active Substance: ELTROMBOPAG
     Indication: IMMUNE THROMBOCYTOPENIA
     Dosage: UNK
     Route: 048
  2. REVOLADE [Suspect]
     Active Substance: ELTROMBOPAG
     Dosage: 50 MG, QD (DRUG STOPED - 2 MONTHS AGO)
     Route: 048
     Dates: start: 202001
  3. REVOLADE [Suspect]
     Active Substance: ELTROMBOPAG
     Dosage: 50 MG, QD
     Route: 048
     Dates: start: 20200112
  4. REVOLADE [Suspect]
     Active Substance: ELTROMBOPAG
     Dosage: 25 MG
     Route: 048

REACTIONS (12)
  - Fear [Unknown]
  - Incorrect dose administered [Unknown]
  - Pain in extremity [Not Recovered/Not Resolved]
  - Cerebrovascular accident [Unknown]
  - Hunger [Unknown]
  - Platelet count decreased [Unknown]
  - Decreased appetite [Unknown]
  - Parosmia [Recovering/Resolving]
  - Stress [Unknown]
  - Arteriovenous malformation [Unknown]
  - Product availability issue [Unknown]
  - Increased appetite [Unknown]

NARRATIVE: CASE EVENT DATE: 202001
